FAERS Safety Report 19207521 (Version 2)
Quarter: 2025Q4

REPORT INFORMATION
  Report Type: Spontaneous
  Country: EU (occurrence: EU)
  Receive Date: 20210503
  Receipt Date: 20251222
  Transmission Date: 20260117
  Serious: Yes (Hospitalization, Other)
  Sender: AUROBINDO
  Company Number: EU-002147023-NVSC2021PT076754

PATIENT
  Age: 80 Year
  Sex: Male

DRUGS (7)
  1. CLOPIDOGREL BISULFATE [Suspect]
     Active Substance: CLOPIDOGREL BISULFATE
     Indication: Product used for unknown indication
     Dosage: 2 GRAM, DAILY
     Route: 061
  2. METFORMIN [Suspect]
     Active Substance: METFORMIN HYDROCHLORIDE
     Indication: Type 2 diabetes mellitus
     Dosage: 2 GRAM, ONCE A DAY
     Route: 065
  3. AMLODIPINE [Suspect]
     Active Substance: AMLODIPINE BESYLATE
     Indication: Product used for unknown indication
     Dosage: 2 GRAM, DAILY
     Route: 061
  4. Atorvastatin7 [Concomitant]
     Indication: Dyslipidaemia
     Dosage: 2 GRAM, DAILY
     Route: 061
  5. BISOPROLOL [Concomitant]
     Active Substance: BISOPROLOL
     Indication: Product used for unknown indication
     Dosage: 2 GRAM, DAILY
     Route: 061
  6. Levothyroxine7 [Concomitant]
     Indication: Autoimmune hypothyroidism
     Dosage: 2 GRAM, DAILY
     Route: 061
  7. Rivaroxaban7 [Concomitant]
     Indication: Product used for unknown indication
     Dosage: 2 GRAM, DAILY
     Route: 061

REACTIONS (2)
  - Vitamin B12 deficiency [Recovered/Resolved]
  - Pancytopenia [Recovered/Resolved]
